FAERS Safety Report 5366945-3 (Version None)
Quarter: 2007Q2

REPORT INFORMATION
  Report Type: 
  Country: None (occurrence: None)
  Receive Date: 20070622
  Receipt Date: 20070328
  Transmission Date: 20071010
  Serious: No
  Sender: FDA-Public Use
  Company Number: US-ASTRAZENECA-2007UW06302

PATIENT
  Age: 71 Year
  Sex: Male
  Weight: 77.1 kg

DRUGS (13)
  1. RHINOCORT [Suspect]
     Indication: NASAL CONGESTION
     Dosage: 120 METER SPRAY/UNIT
     Route: 045
     Dates: start: 20070301
  2. PLAVIX [Concomitant]
  3. LASIX [Concomitant]
  4. LOTREL [Concomitant]
  5. PREVACID [Concomitant]
  6. METOCLOPRAMIDE [Concomitant]
  7. PREDNISONE TAB [Concomitant]
  8. DOXAZOSIN MESYLATE [Concomitant]
  9. PROSCAR [Concomitant]
  10. AZATHIOPRINE [Concomitant]
  11. ASPIRIN [Concomitant]
  12. ARISTOCORT [Concomitant]
  13. CALCIUM CHLORIDE [Concomitant]

REACTIONS (1)
  - INSOMNIA [None]
